FAERS Safety Report 21003404 (Version 1)
Quarter: 2022Q2

REPORT INFORMATION
  Report Type: Spontaneous
  Country: US (occurrence: None)
  Receive Date: 20220623
  Receipt Date: 20220623
  Transmission Date: 20220720
  Serious: No
  Sender: FDA-Public Use
  Company Number: None

PATIENT
  Age: 43 Year
  Sex: Male

DRUGS (1)
  1. CAPECITABINE [Suspect]
     Active Substance: CAPECITABINE
     Dosage: FREQUENCY : TWICE A DAY;?
     Route: 048

REACTIONS (8)
  - Colostomy [None]
  - Oedema peripheral [None]
  - Pollakiuria [None]
  - Insomnia [None]
  - Gastric neoplasm [None]
  - Lung neoplasm [None]
  - Hepatic neoplasm [None]
  - Colon neoplasm [None]

NARRATIVE: CASE EVENT DATE: 20220623
